FAERS Safety Report 7081486-3 (Version None)
Quarter: 2010Q4

REPORT INFORMATION
  Report Type: 
  Country: None (occurrence: None)
  Receive Date: 20101103
  Receipt Date: 20101025
  Transmission Date: 20110411
  Serious: Yes (Hospitalization)
  Sender: FDA-Public Use
  Company Number: FR-ASTRAZENECA-2010SE51006

PATIENT
  Age: 64 Year
  Sex: Male

DRUGS (1)
  1. XYLOCAINE [Suspect]
     Indication: LOCAL ANAESTHESIA
     Dosage: ONE SINGLE DOSE
     Dates: start: 20100721

REACTIONS (2)
  - AGITATION [None]
  - HYPERCAPNIA [None]
